FAERS Safety Report 24395826 (Version 3)
Quarter: 2025Q3

REPORT INFORMATION
  Report Type: Spontaneous
  Country: BR (occurrence: BR)
  Receive Date: 20241004
  Receipt Date: 20250809
  Transmission Date: 20251020
  Serious: Yes (Hospitalization, Other)
  Sender: ALEXION PHARMACEUTICALS
  Company Number: BR-AstraZeneca-2024A187443

PATIENT

DRUGS (1)
  1. CALQUENCE [Suspect]
     Active Substance: ACALABRUTINIB
     Indication: B-cell small lymphocytic lymphoma

REACTIONS (4)
  - Encephalitis [Recovered/Resolved]
  - Lymphocyte count increased [Unknown]
  - Illness [Unknown]
  - Therapy partial responder [Unknown]
